FAERS Safety Report 12196071 (Version 2)
Quarter: 2016Q1

REPORT INFORMATION
  Report Type: Report from Study
  Country: RO (occurrence: RO)
  Receive Date: 20160321
  Receipt Date: 20160325
  Transmission Date: 20160526
  Serious: Yes (Death, Hospitalization)
  Sender: FDA-Public Use
  Company Number: RO-ABBVIE-16P-135-1582780-00

PATIENT
  Age: 57 Year
  Sex: Female
  Weight: 80 kg

DRUGS (3)
  1. COPEGUS [Concomitant]
     Active Substance: RIBAVIRIN
     Indication: HEPATIC CIRRHOSIS
     Route: 048
     Dates: start: 20160225, end: 20160311
  2. VIEKIRAX [Suspect]
     Active Substance: OMBITASVIR\PARITAPREVIR\RITONAVIR
     Indication: HEPATIC CIRRHOSIS
     Dosage: 2-0-0
     Route: 048
     Dates: start: 20160225, end: 20160310
  3. EXVIERA [Suspect]
     Active Substance: DASABUVIR
     Indication: HEPATIC CIRRHOSIS
     Dosage: 1-0-1
     Route: 048
     Dates: start: 20160225, end: 20160310

REACTIONS (6)
  - Vomiting [Recovered/Resolved]
  - Blood bilirubin abnormal [Recovering/Resolving]
  - Jaundice [Recovering/Resolving]
  - Nausea [Recovered/Resolved]
  - Death [Fatal]
  - Hepatic failure [Recovering/Resolving]

NARRATIVE: CASE EVENT DATE: 20160304
